FAERS Safety Report 14417763 (Version 1)
Quarter: 2018Q1

REPORT INFORMATION
  Report Type: Spontaneous
  Country: US (occurrence: US)
  Receive Date: 20180119
  Receipt Date: 20180119
  Transmission Date: 20180509
  Serious: Yes (Other)
  Sender: FDA-Public Use
  Company Number: None

PATIENT
  Age: 6 Year
  Sex: Female
  Weight: 22.5 kg

DRUGS (1)
  1. MIRALAX [Suspect]
     Active Substance: POLYETHYLENE GLYCOL 3350
     Indication: CONSTIPATION
     Dosage: QUANTITY:1 1/2 LID FULL;?
     Route: 048
     Dates: start: 20150901, end: 20170201

REACTIONS (2)
  - Personality change [None]
  - Affective disorder [None]

NARRATIVE: CASE EVENT DATE: 20150901
